FAERS Safety Report 11402278 (Version 1)
Quarter: 2015Q3

REPORT INFORMATION
  Report Type: Spontaneous
  Country: US (occurrence: US)
  Receive Date: 20150821
  Receipt Date: 20150821
  Transmission Date: 20151125
  Serious: No
  Sender: FDA-Public Use
  Company Number: US-ROCHE-1338712

PATIENT
  Sex: Male
  Weight: 89.44 kg

DRUGS (9)
  1. METFORMIN [Concomitant]
     Active Substance: METFORMIN HYDROCHLORIDE
  2. PEGASYS [Suspect]
     Active Substance: PEGINTERFERON ALFA-2A
     Indication: HEPATITIS C
     Route: 058
     Dates: start: 20130521
  3. INCIVEK [Concomitant]
     Active Substance: TELAPREVIR
     Route: 048
     Dates: start: 20130521
  4. LANTUS [Concomitant]
     Active Substance: INSULIN GLARGINE
  5. INCIVEK [Concomitant]
     Active Substance: TELAPREVIR
     Indication: HEPATITIS C
     Dosage: 2 TABS THREE TIMES DAILY
     Route: 048
     Dates: start: 20140108
  6. RIBASPHERE [Concomitant]
     Active Substance: RIBAVIRIN
     Route: 048
     Dates: start: 20130521
  7. SIMVASTATIN. [Concomitant]
     Active Substance: SIMVASTATIN
  8. RIBASPHERE [Concomitant]
     Active Substance: RIBAVIRIN
     Indication: HEPATITIS C
     Dosage: 3 TABS BID
     Route: 048
     Dates: start: 20140108
  9. GLIMEPIRIDE. [Concomitant]
     Active Substance: GLIMEPIRIDE

REACTIONS (4)
  - Nausea [Not Recovered/Not Resolved]
  - Dizziness [Not Recovered/Not Resolved]
  - Decreased appetite [Not Recovered/Not Resolved]
  - Asthenia [Unknown]
